FAERS Safety Report 13587545 (Version 1)
Quarter: 2017Q2

REPORT INFORMATION
  Report Type: Spontaneous
  Country: US (occurrence: US)
  Receive Date: 20170526
  Receipt Date: 20170526
  Transmission Date: 20170830
  Serious: No
  Sender: FDA-Public Use
  Company Number: None

PATIENT
  Sex: Male
  Weight: 109.32 kg

DRUGS (1)
  1. STELARA [Suspect]
     Active Substance: USTEKINUMAB
     Indication: PSORIASIS
     Dosage: INJECT 90MG SQ ON DAY 1, NEXT DOSE 4 WEEKS LATER 28 DAYS SQ
     Route: 058
     Dates: start: 20170503, end: 20170525

REACTIONS (2)
  - Posture abnormal [None]
  - Musculoskeletal stiffness [None]
